FAERS Safety Report 5311156-0 (Version None)
Quarter: 2007Q2

REPORT INFORMATION
  Report Type: 
  Country: None (occurrence: None)
  Receive Date: 20070426
  Receipt Date: 20070426
  Transmission Date: 20071010
  Serious: Yes (Other)
  Sender: FDA-Public Use
  Company Number: None

PATIENT
  Age: 65 Year
  Sex: Female
  Weight: 73.9363 kg

DRUGS (3)
  1. VENLAFAXINE HCL [Suspect]
     Indication: DEPRESSION
     Dosage: 75 MG 1 X DAY PO TOOK 3 - 75MG PILLS
     Route: 048
     Dates: start: 20070211
  2. VENLAFAXINE HCL [Suspect]
     Indication: DEPRESSION
     Dosage: 75 MG 1 X DAY PO TOOK 3 - 75MG PILLS
     Route: 048
     Dates: start: 20070212
  3. VENLAFAXINE HCL [Suspect]
     Indication: DEPRESSION
     Dosage: 75 MG 1 X DAY PO TOOK 3 - 75MG PILLS
     Route: 048
     Dates: start: 20070213

REACTIONS (3)
  - ABNORMAL DREAMS [None]
  - MALAISE [None]
  - STOMACH DISCOMFORT [None]
